FAERS Safety Report 5371364-X (Version None)
Quarter: 2007Q2

REPORT INFORMATION
  Report Type: 
  Country: None (occurrence: None)
  Receive Date: 20070622
  Receipt Date: 20070608
  Transmission Date: 20071010
  Serious: Yes (Other)
  Sender: FDA-Public Use
  Company Number: S06-NLD-04510-01

PATIENT
  Age: 85 Year
  Sex: Female

DRUGS (13)
  1. CITALOPRAM HYDROBROMIDE [Suspect]
     Indication: DEPRESSION
     Dosage: 40 MG QD PO
     Route: 048
     Dates: end: 20060802
  2. METOPROLOL TARTRAS (METOPROLOL TARTRATE) [Concomitant]
  3. LANOXIN [Concomitant]
  4. MARCUMAR [Concomitant]
  5. OXAZEPAMUM (OXAZEPAM) [Concomitant]
  6. AUGMENTIN '125' [Concomitant]
  7. CREMOR MICONAZOLI (ALUMINIUM ACETOTARTRATE) [Concomitant]
  8. HALDOL SOLUTAB [Concomitant]
  9. CAPOTEN [Concomitant]
  10. AMOXICILLIN [Concomitant]
  11. MICONAZOL (MICONAZOLE) [Concomitant]
  12. ZINACEF [Concomitant]
  13. DIPIDOLOR (PIRITRAMIDE) [Concomitant]

REACTIONS (8)
  - ARTHRITIS INFECTIVE [None]
  - BILIRUBIN CONJUGATED INCREASED [None]
  - BLOOD ALKALINE PHOSPHATASE INCREASED [None]
  - BLOOD BILIRUBIN INCREASED [None]
  - GAMMA-GLUTAMYLTRANSFERASE INCREASED [None]
  - INAPPROPRIATE ANTIDIURETIC HORMONE SECRETION [None]
  - MUSCULOSKELETAL DISCOMFORT [None]
  - SEPSIS [None]
